FAERS Safety Report 5695890-9 (Version None)
Quarter: 2008Q2

REPORT INFORMATION
  Report Type: 
  Country: None (occurrence: None)
  Receive Date: 20080403
  Receipt Date: 20080403
  Transmission Date: 20081010
  Serious: No
  Sender: FDA-Public Use
  Company Number: None

PATIENT
  Age: 57 Year
  Sex: Male
  Weight: 108.8633 kg

DRUGS (1)
  1. CHANTIX [Suspect]
     Indication: SMOKING CESSATION THERAPY
     Dosage: 1 A DAY PO
     Route: 048
     Dates: start: 20071001, end: 20071130

REACTIONS (3)
  - DIABETES MELLITUS [None]
  - SPEECH DISORDER [None]
  - VISION BLURRED [None]
